FAERS Safety Report 8319750-X (Version None)
Quarter: 2012Q2

REPORT INFORMATION
  Report Type: 
  Country: None (occurrence: None)
  Receive Date: 20120427
  Receipt Date: 20120406
  Transmission Date: 20120825
  Serious: Yes (Death)
  Sender: FDA-Public Use
  Company Number: PHHY2012JP021934

PATIENT
  Age: 58 Year
  Sex: Female
  Weight: 43 kg

DRUGS (11)
  1. ACYCLOVIR [Concomitant]
     Dosage: 200 MG/DAY
  2. IRRADIATION [Concomitant]
     Dosage: 3 GY, UNK
  3. MYCOPHENOLATE MOFETIL (CELLCEPT) [Suspect]
     Indication: PROPHYLAXIS AGAINST GRAFT VERSUS HOST DISEASE
     Dosage: 15 MG/KG (DIVIDED INTO 2 OR 3 DOSES) ON DAY - 3
  4. HYDROXYZINE [Concomitant]
  5. NEORAL [Suspect]
     Indication: PROPHYLAXIS AGAINST GRAFT VERSUS HOST DISEASE
     Dosage: 3 MG/KG, ON DAY -3 WITH TARGET SERUM CONCENTRATION OF 250 TO 450 NG/ML
  6. LIDOCAINE [Concomitant]
     Dosage: 1 %, UNK
  7. GRANULOCYTE COLONY STIMULATING FACTOR [Concomitant]
     Dosage: 300 MG/M2, UNK
  8. FLUOROQUINOLONES [Concomitant]
  9. ACYCLOVIR [Concomitant]
     Dosage: 1000 MG/DAY FOR 5 WEEKS
  10. EURAX [Concomitant]
     Indication: PREMEDICATION
     Dosage: 100 MG, UNK
     Route: 061
  11. FLUDARABINE PHOSPHATE [Concomitant]
     Dosage: 40 MG/M2, FOR 5 DAYS (DAY -6 TO DAY -2)

REACTIONS (3)
  - THROMBOTIC MICROANGIOPATHY [None]
  - ACUTE GRAFT VERSUS HOST DISEASE IN INTESTINE [None]
  - ACUTE GRAFT VERSUS HOST DISEASE IN SKIN [None]
